FAERS Safety Report 4424626-4 (Version None)
Quarter: 2004Q3

REPORT INFORMATION
  Report Type: 
  Country: None (occurrence: None)
  Receive Date: 20040809
  Receipt Date: 20040726
  Transmission Date: 20050211
  Serious: Yes (Hospitalization)
  Sender: FDA-Public Use
  Company Number: US-JNJFOC-20040707033

PATIENT
  Age: 55 Year
  Sex: Female

DRUGS (10)
  1. INFLIXIMAB (INFLIXIMAB, RECOMBINANT) LYOPHILIZED POWDER [Suspect]
     Indication: RHEUMATOID ARTHRITIS
     Dosage: INTRAVENOUS
     Route: 042
     Dates: start: 20010329
  2. ALBUTEROL [Concomitant]
  3. CALCIUM [Concomitant]
  4. DEMADEX [Concomitant]
  5. DARVOCET-N 100 [Concomitant]
  6. PREDNISONE [Concomitant]
  7. PREVACID [Concomitant]
  8. SPIRONOLACTONE [Concomitant]
  9. BEXTRA [Concomitant]
  10. SINGULAIR [Concomitant]

REACTIONS (2)
  - COLONOSCOPY [None]
  - PROCEDURAL COMPLICATION [None]
